FAERS Safety Report 25899272 (Version 1)
Quarter: 2025Q4

REPORT INFORMATION
  Report Type: Report from Study
  Country: US (occurrence: US)
  Receive Date: 20251009
  Receipt Date: 20251009
  Transmission Date: 20260117
  Serious: Yes (Other)
  Sender: ABBVIE
  Company Number: US-ABBVIE-6492534

PATIENT
  Age: 68 Year
  Sex: Male

DRUGS (1)
  1. SKYRIZI [Suspect]
     Active Substance: RISANKIZUMAB-RZAA
     Indication: Colitis ulcerative
     Route: 058
     Dates: start: 20250603

REACTIONS (3)
  - Myocardial infarction [Recovering/Resolving]
  - Diarrhoea [Not Recovered/Not Resolved]
  - Blood electrolytes abnormal [Unknown]

NARRATIVE: CASE EVENT DATE: 20250101
